FAERS Safety Report 9783233 (Version 4)
Quarter: 2014Q2

REPORT INFORMATION
  Report Type: Spontaneous
  Country: US (occurrence: US)
  Receive Date: 20131226
  Receipt Date: 20140425
  Transmission Date: 20141212
  Serious: Yes (Other)
  Sender: FDA-Public Use
  Company Number: US-PFIZER INC-2013368811

PATIENT
  Age: 70 Year
  Sex: Female

DRUGS (22)
  1. LYRICA [Suspect]
     Dosage: 200 MG, 2X/DAY
  2. FEOSOL [Concomitant]
     Indication: MINERAL SUPPLEMENTATION
     Dosage: UNK
  3. ZANTAC [Concomitant]
     Dosage: 150 MG, 1X/DAY (AT BED TIME)
  4. NEXIUM [Concomitant]
     Dosage: 40 MG, 1X/DAY (ONE CAPSULE IN AM)
  5. NEXIUM [Concomitant]
     Dosage: 40 MG, 2X/DAY
  6. STOOL SOFTENER [Concomitant]
     Dosage: 240 MG, 2X/DAY
  7. CHLORHEXIDINE GLUCONATE [Concomitant]
     Dosage: UNK, 2X/DAY
     Route: 048
  8. ATENOLOL [Concomitant]
     Dosage: 50 MG, 1X/DAY(IN AM)
  9. MAXZIDE [Concomitant]
     Dosage: 1 DF (37.5/25), 1X/DAY
  10. LEVOTHYROXINE [Concomitant]
     Dosage: 0.88 MG, UNK
  11. HYDROXYCHLOROQUINE [Concomitant]
     Dosage: 200 MG, 1X/DAY
     Route: 048
     Dates: start: 20140128
  12. HYDROMORPHONE [Concomitant]
     Indication: BREAKTHROUGH PAIN
     Dosage: 2 MG, AS NEEDED
     Route: 048
  13. LEXAPRO [Concomitant]
     Dosage: 20 MG, 1X/DAY (ONE TAB EACH MORNING)
  14. REMERON [Concomitant]
     Dosage: 45 MG, 1X/DAY (AT BED TIME)
  15. CYMBALTA [Concomitant]
     Dosage: 60 MG, 1X/DAY (ONE CAPSULE AT BEDTIME)
  16. CELEBREX [Concomitant]
     Dosage: 200 MG, 1X/DAY (EVERY MORNING WITH FOOD)
     Route: 048
  17. ALPRAZOLAM [Concomitant]
     Indication: ANXIETY
     Dosage: 0.25 MG, AS NEEDED (TWICE A DAY AS NEEDED)
  18. AMOXICILLIN [Concomitant]
     Dosage: 500 MG, UNK
  19. HYDROCODONE [Concomitant]
     Indication: PAIN
     Dosage: UNK
  20. FLUTICASONE PROPIONATE [Concomitant]
     Dosage: 50 UG, 2X/DAY
     Route: 045
  21. DOXYCYCLINE HYCLATE [Concomitant]
     Dosage: 100 MG, 2X/DAY
     Route: 048
  22. CALCIUM WITH VITAMIN D [Concomitant]
     Dosage: 500 MG, UNK

REACTIONS (1)
  - Hand deformity [Unknown]
